FAERS Safety Report 22076136 (Version 2)
Quarter: 2023Q2

REPORT INFORMATION
  Report Type: Report from Study
  Country: FR (occurrence: None)
  Receive Date: 20230309
  Receipt Date: 20230421
  Transmission Date: 20230722
  Serious: Yes (Hospitalization, Disabling)
  Sender: FDA-Public Use
  Company Number: FR-ROCHE-3301261

PATIENT
  Age: 80 Year
  Sex: Male
  Weight: 69 kg

DRUGS (8)
  1. ATEZOLIZUMAB [Suspect]
     Active Substance: ATEZOLIZUMAB
     Indication: Transitional cell carcinoma
     Dosage: ON 05/DEC/2023, HE RECEIVED MOST RECENT DOSE 1200 MG OF BLINDED ATEZOLIZUMAB PRIOR TO ADVERSE EVENT
     Route: 041
     Dates: start: 20221205
  2. ACETAMINOPHEN\OPIUM [Concomitant]
     Active Substance: ACETAMINOPHEN\OPIUM
     Indication: Pain in extremity
     Route: 048
  3. GABAPENTIN [Concomitant]
     Active Substance: GABAPENTIN
     Indication: Pain in extremity
     Route: 048
  4. FIASP [Concomitant]
     Active Substance: INSULIN ASPART
     Dosage: 1 U
     Route: 058
     Dates: start: 2010
  5. TOUJEO [Concomitant]
     Active Substance: INSULIN GLARGINE
     Dosage: 1U
     Route: 058
     Dates: start: 2010
  6. ESOMEPRAZOLE [Concomitant]
     Active Substance: ESOMEPRAZOLE
     Indication: Gastric ulcer
     Route: 048
  7. LORMETAZEPAM [Concomitant]
     Active Substance: LORMETAZEPAM
     Indication: Insomnia
     Route: 048
  8. LOPERAMIDE [Concomitant]
     Active Substance: LOPERAMIDE
     Indication: Diarrhoea
     Route: 048
     Dates: start: 202301, end: 202301

REACTIONS (1)
  - Acute kidney injury [Not Recovered/Not Resolved]

NARRATIVE: CASE EVENT DATE: 20230102
